FAERS Safety Report 5829390-X (Version None)
Quarter: 2008Q3

REPORT INFORMATION
  Report Type: 
  Country: None (occurrence: None)
  Receive Date: 20080731
  Receipt Date: 20080722
  Transmission Date: 20090109
  Serious: Yes (Other)
  Sender: FDA-Public Use
  Company Number: US-AMGEN-US297815

PATIENT
  Sex: Female

DRUGS (2)
  1. ENBREL [Suspect]
     Indication: PSORIATIC ARTHROPATHY
     Route: 058
     Dates: end: 20080401
  2. ENBREL [Suspect]
     Indication: PSORIASIS

REACTIONS (3)
  - ABORTION SPONTANEOUS [None]
  - PSORIASIS [None]
  - PSORIATIC ARTHROPATHY [None]
